FAERS Safety Report 21839778 (Version 1)
Quarter: 2023Q1

REPORT INFORMATION
  Report Type: Spontaneous
  Country: PL (occurrence: PL)
  Receive Date: 20230109
  Receipt Date: 20230109
  Transmission Date: 20230418
  Serious: Yes (Hospitalization, Other)
  Sender: FDA-Public Use
  Company Number: PL-Accord-294378

PATIENT
  Sex: Male

DRUGS (5)
  1. METHOTREXATE [Suspect]
     Active Substance: METHOTREXATE
     Indication: Ankylosing spondylitis
  2. SULFASALAZINE [Suspect]
     Active Substance: SULFASALAZINE
     Indication: Ankylosing spondylitis
     Dates: start: 1998
  3. ETANERCEPT [Concomitant]
     Active Substance: ETANERCEPT
     Indication: Ankylosing spondylitis
     Dosage: 50 MG WEEKLY
     Route: 058
     Dates: start: 201112, end: 201310
  4. TRIAMCINOLONE ACETONIDE [Concomitant]
     Active Substance: TRIAMCINOLONE ACETONIDE
     Indication: Cystoid macular oedema
     Dosage: TWO INTRAVITREAL INJECTIONS OF TRIAMCINOLONE ACETATE
     Dates: start: 201202, end: 201304
  5. ADALIMUMAB [Concomitant]
     Active Substance: ADALIMUMAB
     Indication: Ankylosing spondylitis
     Dosage: 40 MG OF ADALIMUMAB SUBCUTANEOUSLY
     Route: 058
     Dates: start: 201310, end: 201703

REACTIONS (4)
  - Drug ineffective [Unknown]
  - Off label use [Unknown]
  - Visual impairment [Recovered/Resolved]
  - Uveitis [Recovered/Resolved]
